FAERS Safety Report 9448789 (Version 2)
Quarter: 2013Q3

REPORT INFORMATION
  Report Type: Other
  Country: IT (occurrence: IT)
  Receive Date: 20130808
  Receipt Date: 20130930
  Transmission Date: 20140515
  Serious: Yes (Hospitalization)
  Sender: FDA-Public Use
  Company Number: IT-MPIJNJ-2013-05922

PATIENT
  Sex: 0

DRUGS (7)
  1. VELCADE [Suspect]
     Indication: PLASMA CELL MYELOMA
     Dosage: 8.8 MG, CYCLIC
     Route: 042
     Dates: start: 20130222, end: 20130303
  2. VELCADE [Suspect]
     Dosage: 8 MG, UNK
     Route: 065
     Dates: start: 20130617
  3. DEXAMETHASONE [Concomitant]
     Indication: PLASMA CELL MYELOMA
     Dosage: 20 MG, UNK
     Dates: start: 20130222, end: 20130729
  4. SILODOSIN [Concomitant]
     Indication: BENIGN PROSTATIC HYPERPLASIA
     Dosage: 8 MG, UNK
  5. DUTASTERIDE [Concomitant]
     Indication: BENIGN PROSTATIC HYPERPLASIA
     Dosage: 0.5 MG, UNK
     Route: 048
  6. DILTIAZEM HYDROCHLORIDE [Concomitant]
     Indication: HYPERTENSION
     Dosage: 200 MG, UNK
  7. ORAMORPH [Concomitant]
     Indication: BONE PAIN
     Dosage: 12 UNK, UNK

REACTIONS (3)
  - Chest pain [Recovered/Resolved]
  - Lung infection [Recovered/Resolved]
  - Dyspnoea [Recovered/Resolved]
